FAERS Safety Report 13737708 (Version 1)
Quarter: 2017Q3

REPORT INFORMATION
  Report Type: Spontaneous
  Country: US (occurrence: US)
  Receive Date: 20170710
  Receipt Date: 20170710
  Transmission Date: 20171127
  Serious: No
  Sender: FDA-Public Use
  Company Number: US-SAOL THERAPEUTICS-2016SAO00578

PATIENT
  Sex: Female

DRUGS (3)
  1. LIORESAL [Suspect]
     Active Substance: BACLOFEN
     Indication: POST LAMINECTOMY SYNDROME
     Dosage: UNK
     Route: 037
  2. MORPHINE [Suspect]
     Active Substance: MORPHINE
     Dosage: 2.5 MG, \DAY
     Route: 037
  3. LIORESAL [Suspect]
     Active Substance: BACLOFEN
     Indication: PAIN

REACTIONS (4)
  - Off label use [Unknown]
  - Device failure [Unknown]
  - Restless legs syndrome [Unknown]
  - Influenza like illness [Unknown]
